FAERS Safety Report 7816443-X (Version None)
Quarter: 2011Q4

REPORT INFORMATION
  Report Type: 
  Country: None (occurrence: None)
  Receive Date: 20111017
  Receipt Date: 20111003
  Transmission Date: 20120403
  Serious: No
  Sender: FDA-Public Use
  Company Number: JP-JNJFOC-20111003192

PATIENT
  Age: 65 Year
  Sex: Male

DRUGS (3)
  1. FENTANYL-100 [Suspect]
     Indication: MALIGNANT URINARY TRACT NEOPLASM
     Route: 062
     Dates: start: 20110803
  2. DOMPERIDONE [Concomitant]
     Dosage: 1.5 DF
     Route: 048
  3. DECADRON [Concomitant]
     Dosage: 2 DF
     Route: 048

REACTIONS (2)
  - APPLICATION SITE PRURITUS [None]
  - DRUG ADMINISTERED AT INAPPROPRIATE SITE [None]
